FAERS Safety Report 13415615 (Version 1)
Quarter: 2017Q2

REPORT INFORMATION
  Report Type: Spontaneous
  Country: US (occurrence: US)
  Receive Date: 20170407
  Receipt Date: 20170407
  Transmission Date: 20170830
  Serious: Yes (Hospitalization)
  Sender: FDA-Public Use
  Company Number: US-VIFOR (INTERNATIONAL) INC.-VIT-2017-03597

PATIENT
  Age: 74 Year
  Sex: Male

DRUGS (12)
  1. CLONIDINE HYDROCHLORIDE. [Concomitant]
     Active Substance: CLONIDINE HYDROCHLORIDE
  2. RETINOL [Concomitant]
     Active Substance: RETINOL
  3. VELTASSA [Suspect]
     Active Substance: PATIROMER
     Indication: HYPERKALAEMIA
     Route: 048
     Dates: start: 20160512
  4. HYDRALAZINE HYDROCHLORIDE. [Concomitant]
     Active Substance: HYDRALAZINE HYDROCHLORIDE
  5. ENALAPRIL MALEATE. [Concomitant]
     Active Substance: ENALAPRIL MALEATE
  6. SODIUM BICARBONATE. [Concomitant]
     Active Substance: SODIUM BICARBONATE
  7. VITAMIN B COMPLEX-C [Concomitant]
  8. MAGNESIUM [Concomitant]
     Active Substance: MAGNESIUM
  9. METOPROLOL TARTRATE. [Concomitant]
     Active Substance: METOPROLOL TARTRATE
  10. NIFEDIPINE. [Concomitant]
     Active Substance: NIFEDIPINE
  11. SIMVASTATIN. [Concomitant]
     Active Substance: SIMVASTATIN
  12. ZINC. [Concomitant]
     Active Substance: ZINC

REACTIONS (2)
  - Hospitalisation [Unknown]
  - Dizziness [Unknown]

NARRATIVE: CASE EVENT DATE: 20170327
